FAERS Safety Report 11568613 (Version 1)
Quarter: 2015Q3

REPORT INFORMATION
  Report Type: Spontaneous
  Country: US (occurrence: None)
  Receive Date: 20150928
  Receipt Date: 20150928
  Transmission Date: 20151125
  Serious: No
  Sender: FDA-Public Use
  Company Number: None

PATIENT
  Sex: Female

DRUGS (7)
  1. CAPECITABINE 500MG TEVA [Suspect]
     Active Substance: CAPECITABINE
     Indication: NEOPLASM MALIGNANT
     Dosage: BID 14D ON AND 7 OFF
     Route: 048
     Dates: start: 20150629
  2. IBUPROFEN. [Concomitant]
     Active Substance: IBUPROFEN
  3. PROCHLORFER [Concomitant]
  4. LORAZEPAM. [Concomitant]
     Active Substance: LORAZEPAM
  5. ONDANSETRON [Concomitant]
     Active Substance: ONDANSETRON
  6. TOBRAMYCIN. [Concomitant]
     Active Substance: TOBRAMYCIN
  7. METHOCARBAM [Concomitant]

REACTIONS (1)
  - Neuropathy peripheral [None]
